FAERS Safety Report 10105057 (Version 3)
Quarter: 2015Q1

REPORT INFORMATION
  Report Type: Other
  Country: US (occurrence: US)
  Receive Date: 20140424
  Receipt Date: 20150227
  Transmission Date: 20150720
  Serious: Yes (Death, Other)
  Sender: FDA-Public Use
  Company Number: US-GSKPPD-2014GSK003121

PATIENT
  Age: 73 Year
  Sex: Male

DRUGS (3)
  1. ATROPINE [Concomitant]
     Active Substance: ATROPINE
  2. EPINEPHRINE. [Concomitant]
     Active Substance: EPINEPHRINE
  3. AVANDIA [Suspect]
     Active Substance: ROSIGLITAZONE MALEATE
     Indication: DIABETES MELLITUS
     Dosage: AVANDIA WAS NOT LISTED AMONG THE PATIENTS ADMISSION/DISCHARGE RECORDS.
     Route: 048

REACTIONS (2)
  - Ventricular fibrillation [Fatal]
  - Myocardial infarction [Unknown]

NARRATIVE: CASE EVENT DATE: 20080822
